FAERS Safety Report 6003023-4 (Version None)
Quarter: 2008Q4

REPORT INFORMATION
  Report Type: 
  Country: None (occurrence: None)
  Receive Date: 20081212
  Receipt Date: 20081201
  Transmission Date: 20090506
  Serious: Yes (Other)
  Sender: FDA-Public Use
  Company Number: 107#08#2008-06056

PATIENT
  Sex: Male

DRUGS (1)
  1. AMIODARONE HCL [Suspect]
     Indication: CARDIAC VALVE DISEASE

REACTIONS (4)
  - GLOMERULONEPHRITIS [None]
  - LUNG NEOPLASM [None]
  - PROTEINURIA [None]
  - PULMONARY MASS [None]
